FAERS Safety Report 8396262-9 (Version None)
Quarter: 2012Q2

REPORT INFORMATION
  Report Type: 
  Country: None (occurrence: None)
  Receive Date: 20120530
  Receipt Date: 20120516
  Transmission Date: 20120825
  Serious: Yes (Hospitalization, Other)
  Sender: FDA-Public Use
  Company Number: US-ROCHE-1069787

PATIENT
  Sex: Female

DRUGS (3)
  1. TAXOL [Concomitant]
  2. HERCEPTIN [Suspect]
     Indication: BREAST CANCER
  3. OXYCODONE HCL [Concomitant]

REACTIONS (19)
  - CARDIAC DISORDER [None]
  - FATIGUE [None]
  - PAIN [None]
  - ASTHENIA [None]
  - STRESS [None]
  - HEPATIC PAIN [None]
  - UNEVALUABLE EVENT [None]
  - NEUTROPENIA [None]
  - SYNCOPE [None]
  - INFECTION [None]
  - NEOPLASM MALIGNANT [None]
  - MASTECTOMY [None]
  - PYREXIA [None]
  - RASH [None]
  - FEELING ABNORMAL [None]
  - MENTAL DISORDER [None]
  - BITE [None]
  - SOMNOLENCE [None]
  - ALCOHOL POISONING [None]
